FAERS Safety Report 21378840 (Version 1)
Quarter: 2022Q3

REPORT INFORMATION
  Report Type: Spontaneous
  Country: US (occurrence: None)
  Receive Date: 20220927
  Receipt Date: 20220927
  Transmission Date: 20221027
  Serious: Yes (Other)
  Sender: FDA-Public Use
  Company Number: US-Hikma Pharmaceuticals USA Inc.-US-H14001-22-02419

PATIENT
  Age: 86 Year
  Sex: Female

DRUGS (2)
  1. FLUTICASONE [Suspect]
     Active Substance: FLUTICASONE
     Indication: Sneezing
     Dosage: ONE SPRAY IN EACH NOSTRIL
     Route: 045
     Dates: start: 20220902, end: 20220906
  2. FLUTICASONE [Suspect]
     Active Substance: FLUTICASONE
     Indication: Cough

REACTIONS (12)
  - Swelling [Recovering/Resolving]
  - Eyelid thickening [Recovering/Resolving]
  - Gait disturbance [Recovering/Resolving]
  - Erythema [Recovering/Resolving]
  - Tremor [Recovering/Resolving]
  - Feeling hot [Recovering/Resolving]
  - Skin disorder [Recovering/Resolving]
  - Dizziness [Recovering/Resolving]
  - Nasal oedema [Recovering/Resolving]
  - Oropharyngeal pain [Recovering/Resolving]
  - Pain [Recovering/Resolving]
  - Product use in unapproved indication [Unknown]

NARRATIVE: CASE EVENT DATE: 20220903
